FAERS Safety Report 4322918-0 (Version None)
Quarter: 2004Q1

REPORT INFORMATION
  Report Type: 
  Country: None (occurrence: None)
  Receive Date: 20040322
  Receipt Date: 20040220
  Transmission Date: 20041129
  Serious: Yes (Other)
  Sender: FDA-Public Use
  Company Number: 2004003887

PATIENT
  Age: 26 Year
  Sex: Male
  Weight: 39.4629 kg

DRUGS (4)
  1. VFEND [Suspect]
     Indication: GRANULOMA
     Dosage: 600 MG (TID), ORAL
     Route: 048
     Dates: start: 20030101
  2. BACTRIM [Concomitant]
  3. ESCRITALOPRAM (ESCITALOPRAM) [Concomitant]
  4. FLUTICASONE PROPIONATE [Concomitant]

REACTIONS (5)
  - CHAPPED LIPS [None]
  - CHEST X-RAY ABNORMAL [None]
  - LIP DISORDER [None]
  - PHOTOSENSITIVITY REACTION [None]
  - SUNBURN [None]
